FAERS Safety Report 10207188 (Version 1)
Quarter: 2014Q2

REPORT INFORMATION
  Report Type: Spontaneous
  Country: US (occurrence: US)
  Receive Date: 20140530
  Receipt Date: 20140530
  Transmission Date: 20141212
  Serious: No
  Sender: FDA-Public Use
  Company Number: US-GLAXOSMITHKLINE-A1023239A

PATIENT
  Age: 60 Year
  Sex: Female

DRUGS (10)
  1. VENTOLIN [Suspect]
     Indication: PNEUMONIA
     Dosage: 2PUFF AS REQUIRED
     Route: 055
  2. ZOLOFT [Concomitant]
  3. SYNTHROID [Concomitant]
  4. TOPROL XL [Concomitant]
  5. HCTZ [Concomitant]
  6. VICODIN [Concomitant]
  7. PERCOCET [Concomitant]
  8. IMIPRAMINE [Concomitant]
  9. TRAZODONE [Concomitant]
  10. CELEBREX [Concomitant]

REACTIONS (4)
  - Choking sensation [Recovered/Resolved]
  - Tremor [Recovered/Resolved]
  - Cough [Recovered/Resolved]
  - Product quality issue [Unknown]
